FAERS Safety Report 14514235 (Version 1)
Quarter: 2018Q1

REPORT INFORMATION
  Report Type: Spontaneous
  Country: US (occurrence: US)
  Receive Date: 20180209
  Receipt Date: 20180209
  Transmission Date: 20180509
  Serious: No
  Sender: FDA-Public Use
  Company Number: US-BAUSCH-BL-2017-007692

PATIENT
  Age: 15 Year
  Sex: Female

DRUGS (3)
  1. BENZACLIN [Suspect]
     Active Substance: BENZOYL PEROXIDE\CLINDAMYCIN PHOSPHATE
     Indication: ACNE
     Dosage: ONCE DAILY IN THE MORNING
     Route: 061
  2. ADAPALENE. [Concomitant]
     Active Substance: ADAPALENE
     Indication: ACNE
     Dosage: ONCE DAILY EVERY EVENING TO THE FACE
     Route: 061
  3. CERAVE AM FACIAL MOISTURIZING SPF [Suspect]
     Active Substance: HOMOSALATE\OCTINOXATE\OCTOCRYLENE\ZINC OXIDE
     Indication: THERAPEUTIC SKIN CARE TOPICAL
     Dosage: USED ONLY ONCE
     Route: 061
     Dates: start: 20170309, end: 20170309

REACTIONS (1)
  - Pigmentation disorder [Recovered/Resolved]

NARRATIVE: CASE EVENT DATE: 20170309
